FAERS Safety Report 8239605-9 (Version None)
Quarter: 2012Q1

REPORT INFORMATION
  Report Type: 
  Country: None (occurrence: None)
  Receive Date: 20120328
  Receipt Date: 20120321
  Transmission Date: 20120608
  Serious: Yes (Hospitalization)
  Sender: FDA-Public Use
  Company Number: JP-VERTEX PHARMACEUTICALS INC.-AE-2012-003624

PATIENT
  Age: 63 Year
  Sex: Female

DRUGS (5)
  1. PEGINTERFERON [Concomitant]
     Indication: HEPATITIS C
     Route: 051
     Dates: start: 20120209
  2. RIBAVIRIN [Concomitant]
     Indication: HEPATITIS C
     Route: 048
     Dates: start: 20120209, end: 20120307
  3. RIBAVIRIN [Concomitant]
     Route: 048
     Dates: start: 20120308
  4. TELAVIC (TELAPREVIR) [Suspect]
     Dates: start: 20120308
  5. TELAVIC (TELAPREVIR) [Suspect]
     Indication: HEPATITIS C
     Route: 048
     Dates: start: 20120209, end: 20120302

REACTIONS (3)
  - VOMITING [None]
  - DECREASED APPETITE [None]
  - ANAEMIA [None]
